FAERS Safety Report 24456865 (Version 2)
Quarter: 2024Q4

REPORT INFORMATION
  Report Type: Spontaneous
  Country: US (occurrence: US)
  Receive Date: 20241018
  Receipt Date: 20241023
  Transmission Date: 20250114
  Serious: Yes (Hospitalization)
  Sender: ABBVIE
  Company Number: US-ABBVIE-5965291

PATIENT
  Sex: Female
  Weight: 58.059 kg

DRUGS (5)
  1. SKYRIZI [Suspect]
     Active Substance: RISANKIZUMAB-RZAA
     Indication: Psoriatic arthropathy
     Route: 058
     Dates: start: 2023
  2. SPIRONOLACTONE [Concomitant]
     Active Substance: SPIRONOLACTONE
     Indication: Fluid retention
  3. WARFARIN [Concomitant]
     Active Substance: WARFARIN
     Indication: Atrial fibrillation
  4. OMEPRAZOLE [Concomitant]
     Active Substance: OMEPRAZOLE
     Indication: Dyspepsia
  5. REPATHA [Concomitant]
     Active Substance: EVOLOCUMAB
     Indication: Blood cholesterol increased

REACTIONS (6)
  - Pancreatitis [Recovered/Resolved]
  - Pancreatitis relapsing [Recovering/Resolving]
  - Lipase increased [Recovered/Resolved]
  - Abdominal pain upper [Recovered/Resolved]
  - Lipase increased [Not Recovered/Not Resolved]
  - Abdominal pain upper [Recovering/Resolving]

NARRATIVE: CASE EVENT DATE: 20240101
